FAERS Safety Report 17420809 (Version 1)
Quarter: 2020Q1

REPORT INFORMATION
  Report Type: Spontaneous
  Country: US (occurrence: US)
  Receive Date: 20200214
  Receipt Date: 20200214
  Transmission Date: 20200409
  Serious: No
  Sender: FDA-Public Use
  Company Number: US-PFIZER INC-2020063223

PATIENT
  Age: 48 Year
  Sex: Female
  Weight: 71.67 kg

DRUGS (6)
  1. CLONAZEPAM. [Concomitant]
     Active Substance: CLONAZEPAM
     Dosage: UNK
  2. ZOLOFT [Concomitant]
     Active Substance: SERTRALINE HYDROCHLORIDE
     Dosage: UNK
  3. NICOTROL [Suspect]
     Active Substance: NICOTINE
     Indication: SMOKING CESSATION THERAPY
     Dosage: 10 MG, UNK
     Dates: start: 202001
  4. NICOTINE. [Concomitant]
     Active Substance: NICOTINE
     Dosage: UNK
  5. ABILIFY [Concomitant]
     Active Substance: ARIPIPRAZOLE
     Dosage: UNK
  6. NICOTINE. [Concomitant]
     Active Substance: NICOTINE
     Dosage: 2 MG, UNK

REACTIONS (6)
  - Weight increased [Unknown]
  - Nausea [Unknown]
  - Feeling abnormal [Unknown]
  - Restlessness [Not Recovered/Not Resolved]
  - Tachyphrenia [Unknown]
  - Energy increased [Unknown]

NARRATIVE: CASE EVENT DATE: 2020
